FAERS Safety Report 5359160-0 (Version None)
Quarter: 2007Q2

REPORT INFORMATION
  Report Type: 
  Country: None (occurrence: None)
  Receive Date: 20070615
  Receipt Date: 20070605
  Transmission Date: 20071010
  Serious: Yes (Life-Threatening)
  Sender: FDA-Public Use
  Company Number: FR-ROCHE-501013

PATIENT
  Age: 68 Year
  Sex: Female
  Weight: 61 kg

DRUGS (15)
  1. ROCEPHIN [Suspect]
     Route: 030
     Dates: start: 20070505, end: 20070509
  2. NOVATREX [Suspect]
     Indication: DRUG USE FOR UNKNOWN INDICATION
     Dosage: THREE TABLETS MONTHLY.
     Route: 048
     Dates: end: 20070509
  3. KETEK [Suspect]
     Route: 048
     Dates: start: 20070419, end: 20070424
  4. TAVANIC [Suspect]
     Route: 048
     Dates: start: 20070505, end: 20070509
  5. BREXIN [Suspect]
     Indication: DRUG USE FOR UNKNOWN INDICATION
     Route: 048
     Dates: start: 20070403, end: 20070509
  6. AUGMENTIN '125' [Suspect]
     Route: 048
     Dates: start: 20070430, end: 20070506
  7. TAREG [Concomitant]
     Dosage: STRENGTH: 160. LONG TERM TREATMENT.
  8. SYMBICORT [Concomitant]
     Dosage: LONG TERM TREATMENT.
  9. BRONCHODUAL [Concomitant]
     Dosage: LONG TERM TREATMENT.
  10. ALPRAZOLAM [Concomitant]
     Dosage: LONG TERM TREATMENT.
  11. EFFEXOR [Concomitant]
     Dosage: LONG TERM TREATMENT.
  12. DI ANTALVIC [Concomitant]
     Dosage: LONG TERM TREATMENT.
  13. NEURONTIN [Concomitant]
     Dosage: LONG TERM TREATMENT.
  14. OGAST [Concomitant]
     Dosage: LONG-TERM TREATMENT.
  15. PULMICORT [Concomitant]
     Dosage: LONG-TERM TREATMENT.

REACTIONS (2)
  - PANCYTOPENIA [None]
  - RENAL FAILURE [None]
